FAERS Safety Report 23257454 (Version 2)
Quarter: 2024Q1

REPORT INFORMATION
  Report Type: Report from Study
  Country: US (occurrence: US)
  Receive Date: 20231204
  Receipt Date: 20240226
  Transmission Date: 20240410
  Serious: Yes (Other)
  Sender: FDA-Public Use
  Company Number: US-002147023-NVSC2023US254731

PATIENT
  Sex: Male

DRUGS (1)
  1. LEQVIO [Suspect]
     Active Substance: INCLISIRAN SODIUM
     Indication: Product used for unknown indication
     Dosage: UNK
     Route: 058
     Dates: start: 20230922

REACTIONS (8)
  - Pneumonia [Recovered/Resolved]
  - Cardiac disorder [Recovered/Resolved]
  - Blood triglycerides increased [Unknown]
  - Fluid retention [Recovered/Resolved]
  - Weight decreased [Unknown]
  - Pleurisy [Unknown]
  - Chest pain [Unknown]
  - Venous occlusion [Unknown]
